FAERS Safety Report 5840221-4 (Version None)
Quarter: 2008Q3

REPORT INFORMATION
  Report Type: 
  Country: None (occurrence: None)
  Receive Date: 20080807
  Receipt Date: 20080807
  Transmission Date: 20090109
  Serious: Yes (Hospitalization)
  Sender: FDA-Public Use
  Company Number: None

PATIENT
  Sex: Male
  Weight: 69.5 kg

DRUGS (7)
  1. CYTARABINE [Suspect]
     Dosage: 3600 MG
     Dates: end: 20080719
  2. ETOPOSIDE [Suspect]
     Dosage: 344 MG
     Dates: end: 20080719
  3. ACYCLOVIR [Concomitant]
  4. AVELOX [Concomitant]
  5. LASIX [Concomitant]
  6. NEUPOGEN [Concomitant]
  7. VORICONAZOLE [Concomitant]

REACTIONS (3)
  - BLOOD CULTURE POSITIVE [None]
  - FEBRILE NEUTROPENIA [None]
  - STAPHYLOCOCCAL INFECTION [None]
